FAERS Safety Report 17792109 (Version 2)
Quarter: 2021Q4

REPORT INFORMATION
  Report Type: Spontaneous
  Country: US (occurrence: US)
  Receive Date: 20200515
  Receipt Date: 20211001
  Transmission Date: 20220303
  Serious: Yes (Hospitalization, Other)
  Sender: FDA-Public Use
  Company Number: US-SA-2020SA123998

PATIENT
  Age: 66 Year
  Sex: Male

DRUGS (3)
  1. SEVELAMER [Interacting]
     Active Substance: SEVELAMER
     Indication: Hyperphosphataemia
     Dosage: 800 MG, TID
  2. SEVELAMER [Interacting]
     Active Substance: SEVELAMER
     Dosage: 1600 MG, TID
  3. KAYEXALATE [Interacting]
     Active Substance: SODIUM POLYSTYRENE SULFONATE
     Indication: Hyperkalaemia
     Dosage: 30 G, 1X

REACTIONS (10)
  - Gastrointestinal necrosis [Unknown]
  - Drug interaction [Unknown]
  - Intestinal ischaemia [Unknown]
  - Mucosal ulceration [Unknown]
  - Serositis [Unknown]
  - Short-bowel syndrome [Unknown]
  - Venous thrombosis [Unknown]
  - Ischaemic enteritis [Unknown]
  - Oesophageal perforation [Unknown]
  - Crystal deposit intestine [Unknown]
